FAERS Safety Report 6599835-9 (Version None)
Quarter: 2010Q1

REPORT INFORMATION
  Report Type: 
  Country: None (occurrence: None)
  Receive Date: 20100216
  Receipt Date: 20100128
  Transmission Date: 20100710
  Serious: Yes (Hospitalization)
  Sender: FDA-Public Use
  Company Number: 2010US-30834

PATIENT
  Age: 46 Year
  Sex: Male

DRUGS (3)
  1. METOPROLOL TARTRATE [Suspect]
     Indication: ANGINA UNSTABLE
     Dosage: 50 MG, BID; 100 MG, BID
  2. VERAPAMIL [Suspect]
     Indication: ANGINA UNSTABLE
     Dosage: 80 MG, TID
  3. GLYCERYL TRINITRATE   (GLYCERYL TRINITRATE) [Concomitant]

REACTIONS (6)
  - ANGINA PECTORIS [None]
  - ATRIOVENTRICULAR BLOCK SECOND DEGREE [None]
  - CONDITION AGGRAVATED [None]
  - CORONARY ARTERY STENOSIS [None]
  - DRUG INTERACTION [None]
  - OFF LABEL USE [None]
